FAERS Safety Report 9256968 (Version 1)
Quarter: 2013Q2

REPORT INFORMATION
  Report Type: Spontaneous
  Country: US (occurrence: None)
  Receive Date: 20130423
  Receipt Date: 20130423
  Transmission Date: 20140414
  Serious: Yes (Hospitalization)
  Sender: FDA-Public Use
  Company Number: JPI-P-031293

PATIENT
  Age: 52 Year
  Sex: Male

DRUGS (5)
  1. XYREM (500 MILLIGRAM/MILLILITERS, SOLUTION)(SODIUM OXYBATE) [Suspect]
     Indication: NARCOLEPSY
     Dosage: (2.25 GM,2 IN 1 D)
     Route: 048
     Dates: start: 20091029
  2. MODAFINIL [Concomitant]
  3. ALPRAZOLAM [Concomitant]
  4. PROMETHAZINE [Concomitant]
  5. PROCHLORPERAZINE [Concomitant]

REACTIONS (3)
  - Incoherent [None]
  - Dysarthria [None]
  - Respiratory rate decreased [None]
